FAERS Safety Report 7626491-0 (Version None)
Quarter: 2011Q3

REPORT INFORMATION
  Report Type: 
  Country: None (occurrence: None)
  Receive Date: 20110721
  Receipt Date: 20110428
  Transmission Date: 20111222
  Serious: No
  Sender: FDA-Public Use
  Company Number: US-NOVEN-11US002391

PATIENT
  Sex: Female

DRUGS (3)
  1. ANTIHYPERTENSIVES [Concomitant]
     Indication: HYPERTENSION
     Route: 048
  2. DRUG USED IN DIABETES [Concomitant]
     Indication: TYPE 2 DIABETES MELLITUS
     Route: 048
  3. FENTANYL [Suspect]
     Indication: BACK PAIN
     Dosage: 100 UG, Q72HR
     Route: 062
     Dates: start: 20010101

REACTIONS (2)
  - PRODUCT QUALITY ISSUE [None]
  - PRURITUS GENERALISED [None]
